FAERS Safety Report 14608075 (Version 1)
Quarter: 2018Q1

REPORT INFORMATION
  Report Type: Spontaneous
  Country: US (occurrence: US)
  Receive Date: 20180307
  Receipt Date: 20180307
  Transmission Date: 20180509
  Serious: Yes (Disabling)
  Sender: FDA-Public Use
  Company Number: US-MISSION PHARMACAL COMPANY-2043177

PATIENT
  Sex: Male

DRUGS (1)
  1. THERAGESIC CREME [Suspect]
     Active Substance: MENTHOL\METHYL SALICYLATE
     Indication: PAIN IN EXTREMITY
     Route: 061
     Dates: start: 20170513

REACTIONS (1)
  - Thermal burn [Unknown]
